FAERS Safety Report 18918796 (Version 1)
Quarter: 2021Q1

REPORT INFORMATION
  Report Type: Spontaneous
  Country: CO (occurrence: CO)
  Receive Date: 20210220
  Receipt Date: 20210220
  Transmission Date: 20210420
  Serious: Yes (Hospitalization, Other)
  Sender: FDA-Public Use
  Company Number: CO-SUN PHARMACEUTICAL INDUSTRIES LTD-2021RR-282003

PATIENT
  Age: 62 Year
  Sex: Male

DRUGS (12)
  1. DOXORUBICIN [Suspect]
     Active Substance: DOXORUBICIN
     Indication: LYMPHOMA
     Dosage: 6 CYCLES OF ABVD
     Route: 065
  2. METHYLPREDNISOLONE. [Suspect]
     Active Substance: METHYLPREDNISOLONE
     Indication: AMERICAN TRYPANOSOMIASIS
     Dosage: 3 CYCLES OF ESHAP
     Route: 065
  3. VINBLASTINE [Suspect]
     Active Substance: VINBLASTINE
     Indication: LYMPHOMA
     Dosage: 6 CYCLES OF ABVD
     Route: 065
  4. MELPHALAN. [Suspect]
     Active Substance: MELPHALAN
     Indication: AMERICAN TRYPANOSOMIASIS
     Dosage: BEAM REGIMEN
     Route: 065
  5. CISPLATIN. [Suspect]
     Active Substance: CISPLATIN
     Indication: AMERICAN TRYPANOSOMIASIS
     Dosage: 3 CYCLES OF ESHAP PLUS BEAM REGIMEN
     Route: 065
  6. DACARBAZINE. [Suspect]
     Active Substance: DACARBAZINE
     Indication: LYMPHOMA
     Dosage: 6 CYCLES OF ABVD
     Route: 065
  7. BLEOMYCIN [Suspect]
     Active Substance: BLEOMYCIN SULFATE
     Indication: LYMPHOMA
     Dosage: 6 CYCLES OF ABVD
     Route: 065
  8. CYTARABINE. [Suspect]
     Active Substance: CYTARABINE
     Dosage: BEAM REGIMEN
     Route: 065
  9. ETOPOSIDE. [Suspect]
     Active Substance: ETOPOSIDE
     Dosage: BEAM REGIMEN
     Route: 065
  10. CYTARABINE. [Suspect]
     Active Substance: CYTARABINE
     Indication: AMERICAN TRYPANOSOMIASIS
     Dosage: 3 CYCLES OF ESHAP
     Route: 065
  11. CARMUSTINE. [Suspect]
     Active Substance: CARMUSTINE
     Indication: AMERICAN TRYPANOSOMIASIS
     Dosage: BEAM REGIMEN
     Route: 065
  12. ETOPOSIDE. [Suspect]
     Active Substance: ETOPOSIDE
     Indication: AMERICAN TRYPANOSOMIASIS
     Dosage: 3 CYCLES OF ESHAP
     Route: 065

REACTIONS (3)
  - American trypanosomiasis [Unknown]
  - Disease recurrence [Unknown]
  - Pyrexia [Unknown]
